FAERS Safety Report 13029793 (Version 1)
Quarter: 2016Q4

REPORT INFORMATION
  Report Type: Spontaneous
  Country: US (occurrence: US)
  Receive Date: 20161214
  Receipt Date: 20161214
  Transmission Date: 20170207
  Serious: No
  Sender: FDA-Public Use
  Company Number: None

PATIENT
  Age: 61 Year
  Sex: Female
  Weight: 47.25 kg

DRUGS (8)
  1. LEXAPRO [Concomitant]
     Active Substance: ESCITALOPRAM OXALATE
  2. NEURONTIN [Concomitant]
     Active Substance: GABAPENTIN
  3. PROLIA [Suspect]
     Active Substance: DENOSUMAB
     Indication: FRACTURE
     Dates: start: 20161122, end: 20161122
  4. RENVELA [Concomitant]
     Active Substance: SEVELAMER CARBONATE
  5. CLONAZEPAM. [Concomitant]
     Active Substance: CLONAZEPAM
  6. VITAMIN D [Concomitant]
     Active Substance: CHOLECALCIFEROL
  7. MULTIVITAMIN [Concomitant]
     Active Substance: VITAMINS
  8. VITAMIN B12 INJECTION [Concomitant]

REACTIONS (9)
  - Dysphagia [None]
  - Blood calcium decreased [None]
  - Gait disturbance [None]
  - Bone pain [None]
  - Blood phosphorus decreased [None]
  - Speech disorder [None]
  - Disturbance in attention [None]
  - Asthenia [None]
  - Bowel movement irregularity [None]

NARRATIVE: CASE EVENT DATE: 20161123
